FAERS Safety Report 7573972-4 (Version None)
Quarter: 2011Q2

REPORT INFORMATION
  Report Type: 
  Country: None (occurrence: None)
  Receive Date: 20110627
  Receipt Date: 20110614
  Transmission Date: 20111010
  Serious: No
  Sender: FDA-Public Use
  Company Number: NO-JNJFOC-20110512827

PATIENT
  Sex: Female

DRUGS (2)
  1. METHOTREXATE [Concomitant]
     Indication: RHEUMATOID ARTHRITIS
     Route: 048
  2. SIMPONI [Suspect]
     Indication: JUVENILE ARTHRITIS
     Route: 058
     Dates: start: 20110202

REACTIONS (1)
  - PHOTODERMATOSIS [None]
